FAERS Safety Report 25043399 (Version 2)
Quarter: 2025Q2

REPORT INFORMATION
  Report Type: Spontaneous
  Country: US (occurrence: US)
  Receive Date: 20250305
  Receipt Date: 20250423
  Transmission Date: 20250717
  Serious: No
  Sender: JOHNSON AND JOHNSON
  Company Number: US-JNJFOC-20250252739

PATIENT
  Age: 93 Year
  Sex: Female
  Weight: 49.44 kg

DRUGS (1)
  1. STELARA [Suspect]
     Active Substance: USTEKINUMAB
     Indication: Colitis ulcerative
     Dosage: THERAPY START DATE:15-FEB-2025
     Route: 058
     Dates: end: 20250411

REACTIONS (2)
  - Product dose omission issue [Unknown]
  - Product storage error [Unknown]

NARRATIVE: CASE EVENT DATE: 20250211
